FAERS Safety Report 9364763 (Version 1)
Quarter: 2013Q2

REPORT INFORMATION
  Report Type: Spontaneous
  Country: GB (occurrence: GB)
  Receive Date: 20130624
  Receipt Date: 20130624
  Transmission Date: 20140414
  Serious: Yes (Disabling)
  Sender: FDA-Public Use
  Company Number: GB-TEVA-413756ISR

PATIENT
  Age: 66 Year
  Sex: Female

DRUGS (2)
  1. IPRATROPIUM [Suspect]
     Indication: CHRONIC OBSTRUCTIVE PULMONARY DISEASE
     Route: 045
     Dates: start: 20121224
  2. SALBUTAMOL [Suspect]
     Indication: CHRONIC OBSTRUCTIVE PULMONARY DISEASE
     Dosage: 2.5MG NEBULISED FOUR TIMES A DAY
     Route: 045
     Dates: start: 20121224

REACTIONS (2)
  - Angle closure glaucoma [Recovered/Resolved with Sequelae]
  - Eye pain [Unknown]
